FAERS Safety Report 18918182 (Version 9)
Quarter: 2021Q2

REPORT INFORMATION
  Report Type: Report from Study
  Country: FR (occurrence: FR)
  Receive Date: 20210219
  Receipt Date: 20210611
  Transmission Date: 20210717
  Serious: Yes (Hospitalization)
  Sender: FDA-Public Use
  Company Number: FR-BIOGEN-2021BI00978374

PATIENT
  Age: 17 Year
  Sex: Female
  Weight: 51 kg

DRUGS (4)
  1. AVONEX [Suspect]
     Active Substance: INTERFERON BETA-1A
     Route: 030
     Dates: start: 20201113, end: 20201113
  2. AVONEX [Suspect]
     Active Substance: INTERFERON BETA-1A
     Indication: RELAPSING-REMITTING MULTIPLE SCLEROSIS
     Route: 030
     Dates: start: 20201028, end: 20201028
  3. AVONEX [Suspect]
     Active Substance: INTERFERON BETA-1A
     Route: 030
     Dates: start: 20201120, end: 20210219
  4. AVONEX [Suspect]
     Active Substance: INTERFERON BETA-1A
     Route: 030
     Dates: start: 20201106, end: 20201106

REACTIONS (3)
  - Haematuria [Recovered/Resolved]
  - Abdominal pain [Recovered/Resolved]
  - Haemorrhagic ovarian cyst [Recovered/Resolved]

NARRATIVE: CASE EVENT DATE: 20210209
